FAERS Safety Report 7529029-1 (Version None)
Quarter: 2011Q2

REPORT INFORMATION
  Report Type: 
  Country: None (occurrence: None)
  Receive Date: 20110607
  Receipt Date: 20110527
  Transmission Date: 20111010
  Serious: Yes (Other)
  Sender: FDA-Public Use
  Company Number: US-AMGEN-USASP2011027773

PATIENT
  Age: 61 Year
  Sex: Female

DRUGS (1)
  1. ENBREL [Suspect]
     Indication: RHEUMATOID ARTHRITIS
     Dosage: 25 MG, QWK
     Dates: start: 19990717

REACTIONS (14)
  - THROAT IRRITATION [None]
  - POOR PERIPHERAL CIRCULATION [None]
  - BLOOD TEST ABNORMAL [None]
  - CHILLS [None]
  - INSOMNIA [None]
  - NERVOUSNESS [None]
  - SJOGREN'S SYNDROME [None]
  - INJECTION SITE HAEMATOMA [None]
  - DIABETES MELLITUS [None]
  - SINUS HEADACHE [None]
  - INCREASED TENDENCY TO BRUISE [None]
  - INCREASED UPPER AIRWAY SECRETION [None]
  - DEPRESSION [None]
  - RENAL FAILURE CHRONIC [None]
